FAERS Safety Report 7016831-8 (Version None)
Quarter: 2010Q3

REPORT INFORMATION
  Report Type: 
  Country: None (occurrence: None)
  Receive Date: 20100927
  Receipt Date: 20100924
  Transmission Date: 20110219
  Serious: Yes (Hospitalization, Other)
  Sender: FDA-Public Use
  Company Number: US-ROXANE LABORATORIES, INC.-2010-RO-01272RO

PATIENT
  Age: 42 Year
  Sex: Female

DRUGS (3)
  1. MYCOPHENOLATE MOFETIL [Suspect]
     Indication: AUTOIMMUNE HEPATITIS
     Dosage: 3000 MG
  2. AZATHIOPRINE [Suspect]
     Indication: AUTOIMMUNE HEPATITIS
  3. PREDNISONE [Suspect]
     Indication: AUTOIMMUNE HEPATITIS

REACTIONS (4)
  - EPSTEIN-BARR VIRAEMIA [None]
  - LYMPHOPROLIFERATIVE DISORDER [None]
  - ORAL DISORDER [None]
  - PSEUDOLYMPHOMA [None]
